FAERS Safety Report 9660687 (Version 1)
Quarter: 2013Q4

REPORT INFORMATION
  Report Type: Spontaneous
  Country: NL (occurrence: NL)
  Receive Date: 20131031
  Receipt Date: 20131031
  Transmission Date: 20140711
  Serious: Yes (Hospitalization)
  Sender: FDA-Public Use
  Company Number: NL-BAYER-2013-132932

PATIENT
  Age: 51 Year
  Sex: Female
  Weight: 74 kg

DRUGS (1)
  1. YASMIN [Suspect]
     Indication: CONTRACEPTION
     Dosage: 1 TIMES PER 1 DAYS 1 DF
     Route: 048
     Dates: start: 2000, end: 200703

REACTIONS (1)
  - Breast cancer [Recovered/Resolved with Sequelae]
